FAERS Safety Report 8187250-6 (Version None)
Quarter: 2012Q1

REPORT INFORMATION
  Report Type: 
  Country: None (occurrence: None)
  Receive Date: 20120306
  Receipt Date: 20120227
  Transmission Date: 20120608
  Serious: Yes (Hospitalization, Other)
  Sender: FDA-Public Use
  Company Number: ES-JNJFOC-20111109063

PATIENT
  Sex: Female
  Weight: 55 kg

DRUGS (2)
  1. STELARA [Suspect]
     Indication: PSORIATIC ARTHROPATHY
     Route: 058
     Dates: start: 20090901, end: 20091001
  2. STELARA [Suspect]
     Route: 058
     Dates: start: 20111017

REACTIONS (2)
  - OFF LABEL USE [None]
  - PSORIASIS [None]
